FAERS Safety Report 10730095 (Version 1)
Quarter: 2015Q1

REPORT INFORMATION
  Report Type: Spontaneous
  Country: CN (occurrence: CN)
  Receive Date: 20150122
  Receipt Date: 20150122
  Transmission Date: 20150721
  Serious: Yes (Other)
  Sender: FDA-Public Use
  Company Number: CN-BAYER-2015-008918

PATIENT
  Age: 82 Year
  Sex: Male
  Weight: 85 kg

DRUGS (3)
  1. BAYASPIRIN [Suspect]
     Active Substance: ASPIRIN
     Indication: ANTICOAGULANT THERAPY
  2. DIPROPHYLLINE [Suspect]
     Active Substance: DYPHYLLINE
     Dosage: UNK
     Route: 041
     Dates: start: 20140919
  3. BAYASPIRIN [Suspect]
     Active Substance: ASPIRIN
     Indication: CEREBRAL INFARCTION
     Dosage: 0.1 G, QD
     Route: 048
     Dates: start: 20140919, end: 20140919

REACTIONS (1)
  - Asthma [Recovering/Resolving]

NARRATIVE: CASE EVENT DATE: 20140919
